FAERS Safety Report 22281271 (Version 1)
Quarter: 2023Q2

REPORT INFORMATION
  Report Type: Spontaneous
  Country: US (occurrence: US)
  Receive Date: 20230504
  Receipt Date: 20230504
  Transmission Date: 20230722
  Serious: Yes (Other)
  Sender: FDA-Public Use
  Company Number: US-TEVA-2023-US-2881970

PATIENT
  Age: 26 Year
  Sex: Male

DRUGS (1)
  1. FENTANYL [Suspect]
     Active Substance: FENTANYL
     Indication: Product used for unknown indication
     Route: 048

REACTIONS (4)
  - Impaired driving ability [Unknown]
  - Dysarthria [Unknown]
  - Balance disorder [Unknown]
  - Slow response to stimuli [Unknown]
